FAERS Safety Report 24284314 (Version 1)
Quarter: 2024Q3

REPORT INFORMATION
  Report Type: Spontaneous
  Country: FR (occurrence: FR)
  Receive Date: 20240905
  Receipt Date: 20240905
  Transmission Date: 20241017
  Serious: Yes (Death, Other)
  Sender: AUROBINDO
  Company Number: FR-EMA-DD-20240826-7482647-151112

PATIENT
  Age: 71 Year
  Sex: Male

DRUGS (9)
  1. MYCOPHENOLATE MOFETIL [Suspect]
     Active Substance: MYCOPHENOLATE MOFETIL
     Indication: Lung adenocarcinoma
     Dosage: UNK
     Route: 065
  2. MYCOPHENOLATE MOFETIL [Suspect]
     Active Substance: MYCOPHENOLATE MOFETIL
     Indication: Renal transplant
  3. MYCOPHENOLATE MOFETIL [Suspect]
     Active Substance: MYCOPHENOLATE MOFETIL
     Indication: Immunosuppressant drug therapy
  4. NIVOLUMAB [Suspect]
     Active Substance: NIVOLUMAB
     Indication: Immunosuppressant drug therapy
     Dosage: 3 MILLIGRAM/KILOGRAM (3 MG/KG, BIW (EVERY 15 DAYS))
     Route: 065
  5. NIVOLUMAB [Suspect]
     Active Substance: NIVOLUMAB
     Indication: Renal transplant
  6. NIVOLUMAB [Suspect]
     Active Substance: NIVOLUMAB
     Indication: Lung adenocarcinoma
     Dosage: 3 MILLIGRAM/KILOGRAM (3 MILLIGRAM/KILOGRAM, Q2WK(EVERY 15 DAYS))
     Route: 065
  7. SIROLIMUS [Suspect]
     Active Substance: SIROLIMUS
     Indication: Renal transplant
     Dosage: UNK
     Route: 065
  8. SIROLIMUS [Suspect]
     Active Substance: SIROLIMUS
     Indication: Immunosuppressant drug therapy
  9. SIROLIMUS [Suspect]
     Active Substance: SIROLIMUS
     Indication: Lung adenocarcinoma

REACTIONS (5)
  - Chylothorax [Fatal]
  - Malignant neoplasm progression [Unknown]
  - Lung adenocarcinoma stage IV [Unknown]
  - Kidney transplant rejection [Unknown]
  - Intentional product use issue [Unknown]
